FAERS Safety Report 4532329-0 (Version None)
Quarter: 2004Q4

REPORT INFORMATION
  Report Type: 
  Country: None (occurrence: None)
  Receive Date: 20041206
  Receipt Date: 20040920
  Transmission Date: 20050328
  Serious: Yes (Hospitalization)
  Sender: FDA-Public Use
  Company Number: USA040978227

PATIENT
  Age: 82 Year
  Sex: Male

DRUGS (5)
  1. CYMBALTA [Suspect]
     Indication: MAJOR DEPRESSION
     Dosage: 60 MG
     Dates: start: 20040913, end: 20040914
  2. SEROQUEL [Concomitant]
  3. EXELON [Concomitant]
  4. NORTRIPTYLINE HCL [Concomitant]
  5. ATIVAN [Concomitant]

REACTIONS (3)
  - DEHYDRATION [None]
  - NAUSEA [None]
  - VOMITING [None]
